FAERS Safety Report 10377347 (Version 1)
Quarter: 2014Q3

REPORT INFORMATION
  Report Type: Spontaneous
  Country: JP (occurrence: JP)
  Receive Date: 20140812
  Receipt Date: 20140812
  Transmission Date: 20150326
  Serious: Yes (Other)
  Sender: FDA-Public Use
  Company Number: PHHY2011JP121776

PATIENT
  Sex: Male

DRUGS (1)
  1. GLIVEC [Suspect]
     Active Substance: IMATINIB MESYLATE
     Indication: GASTROINTESTINAL STROMAL TUMOUR
     Dosage: UNK
     Route: 065

REACTIONS (11)
  - Leukopenia [Unknown]
  - Disease progression [Unknown]
  - Second primary malignancy [Unknown]
  - Spinal cord compression [Unknown]
  - Depression [Unknown]
  - Dizziness [Unknown]
  - Hypertension [Unknown]
  - Bone neoplasm [Unknown]
  - Malaise [Unknown]
  - Anaemia [Unknown]
  - Thrombocytopenia [Unknown]
